FAERS Safety Report 5246781-9 (Version None)
Quarter: 2007Q1

REPORT INFORMATION
  Report Type: 
  Country: None (occurrence: None)
  Receive Date: 20070226
  Receipt Date: 20070214
  Transmission Date: 20070707
  Serious: Yes (Other)
  Sender: FDA-Public Use
  Company Number: NL-BRISTOL-MYERS SQUIBB COMPANY-13680715

PATIENT
  Age: 44 Year
  Sex: Male

DRUGS (9)
  1. AMPHOTERICIN B [Suspect]
     Indication: MENINGITIS CRYPTOCOCCAL
  2. STAVUDINE [Suspect]
  3. ISONIAZID [Suspect]
  4. RIFABUTIN [Suspect]
  5. PYRAZINAMIDE [Suspect]
  6. ETHAMBUTOL HYDROCHLORIDE [Suspect]
  7. PYRIDOXINE HCL [Suspect]
  8. NEVIRAPINE [Suspect]
  9. LAMIVUDINE [Suspect]

REACTIONS (2)
  - DIABETES INSIPIDUS [None]
  - MENINGITIS CRYPTOCOCCAL [None]
